FAERS Safety Report 23348279 (Version 3)
Quarter: 2024Q1

REPORT INFORMATION
  Report Type: Report from Study
  Country: TW (occurrence: TW)
  Receive Date: 20231228
  Receipt Date: 20240227
  Transmission Date: 20240410
  Serious: Yes (Other)
  Sender: FDA-Public Use
  Company Number: TW-GILEAD-2023-0656740

PATIENT
  Age: 61 Year
  Sex: Female
  Weight: 46.4 kg

DRUGS (6)
  1. SACITUZUMAB GOVITECAN-HZIY [Suspect]
     Active Substance: SACITUZUMAB GOVITECAN-HZIY
     Indication: Triple negative breast cancer
     Dosage: 10 MG/KG, QD, CYCLE 3
     Route: 065
     Dates: start: 20231117
  2. SACITUZUMAB GOVITECAN-HZIY [Suspect]
     Active Substance: SACITUZUMAB GOVITECAN-HZIY
     Indication: Hormone receptor positive breast cancer
     Dosage: 180 MG, INJECTION
     Route: 065
     Dates: start: 20231117
  3. SACITUZUMAB GOVITECAN-HZIY [Suspect]
     Active Substance: SACITUZUMAB GOVITECAN-HZIY
     Dosage: 10 MG/KG, QD, CYCLE 3
     Route: 065
     Dates: start: 20231214
  4. SACITUZUMAB GOVITECAN-HZIY [Suspect]
     Active Substance: SACITUZUMAB GOVITECAN-HZIY
     Dosage: 10 MG/KG, QD, CYCLE 4
     Route: 065
     Dates: start: 20231228
  5. SACITUZUMAB GOVITECAN-HZIY [Suspect]
     Active Substance: SACITUZUMAB GOVITECAN-HZIY
     Dosage: 10 MG/KG, QD, CYCLE 6
     Route: 042
     Dates: start: 20240125
  6. SACITUZUMAB GOVITECAN-HZIY [Suspect]
     Active Substance: SACITUZUMAB GOVITECAN-HZIY
     Dosage: 10 MG/KG, QD, CYCLE 7
     Route: 042
     Dates: start: 20240215

REACTIONS (5)
  - Breast cancer female [Unknown]
  - Breast cancer female [Unknown]
  - Laryngitis [Unknown]
  - Generalised anxiety disorder [Unknown]
  - Ear injury [Unknown]
